FAERS Safety Report 5013758-8 (Version None)
Quarter: 2006Q2

REPORT INFORMATION
  Report Type: 
  Country: None (occurrence: None)
  Receive Date: 20060530
  Receipt Date: 20021024
  Transmission Date: 20061013
  Serious: Yes (Other)
  Sender: FDA-Public Use
  Company Number: TOS-000234

PATIENT
  Age: 58 Year
  Sex: Male
  Weight: 83.2 kg

DRUGS (4)
  1. BEXXAR [Suspect]
     Indication: NON-HODGKIN'S LYMPHOMA
     Route: 042
     Dates: start: 19981210, end: 19981210
  2. IODINE I 131 TOSITUMOMAB [Suspect]
     Indication: NON-HODGKIN'S LYMPHOMA
     Route: 042
     Dates: start: 19981210, end: 19981210
  3. BEXXAR [Suspect]
     Route: 042
     Dates: start: 19981218, end: 19981218
  4. IODINE I 131 TOSITUMOMAB [Suspect]
     Route: 042
     Dates: start: 19981218, end: 19981218

REACTIONS (8)
  - ACUTE MYELOID LEUKAEMIA [None]
  - ATELECTASIS [None]
  - DISEASE PROGRESSION [None]
  - DISEASE RECURRENCE [None]
  - FEBRILE NEUTROPENIA [None]
  - MYELODYSPLASTIC SYNDROME [None]
  - NEUROTOXICITY [None]
  - PANCYTOPENIA [None]
